FAERS Safety Report 16432443 (Version 3)
Quarter: 2019Q4

REPORT INFORMATION
  Report Type: Report from Study
  Country: US (occurrence: US)
  Receive Date: 20190614
  Receipt Date: 20191206
  Transmission Date: 20200122
  Serious: Yes (Other)
  Sender: FDA-Public Use
  Company Number: US-ACTELION-A-NJ2019-191578

PATIENT
  Age: 72 Year
  Sex: Female

DRUGS (1)
  1. OPSUMIT [Suspect]
     Active Substance: MACITENTAN
     Indication: PULMONARY HYPERTENSION
     Dosage: 10 MG, QD
     Route: 048
     Dates: start: 20180315

REACTIONS (5)
  - Knee arthroplasty [Unknown]
  - Product dose omission [Unknown]
  - Arthropathy [Unknown]
  - Dyspnoea [Unknown]
  - Biopsy bladder [Unknown]

NARRATIVE: CASE EVENT DATE: 20190528
